FAERS Safety Report 5630324-1 (Version None)
Quarter: 2008Q1

REPORT INFORMATION
  Report Type: 
  Country: None (occurrence: None)
  Receive Date: 20080212
  Receipt Date: 20080205
  Transmission Date: 20080703
  Serious: Yes (Death, Other)
  Sender: FDA-Public Use
  Company Number: 163-21880-07110965

PATIENT
  Age: 84 Year
  Sex: Male
  Weight: 69.8539 kg

DRUGS (3)
  1. REVLIMID [Suspect]
     Indication: MULTIPLE MYELOMA
     Dosage: 20 MG, DAILY X 21 DAYS OUT OF 28, ORAL
     Route: 048
     Dates: start: 20070101, end: 20071110
  2. ZOMETA [Suspect]
     Indication: METASTASES TO BONE
     Dosage: 2 MG, Q 4 WKS
     Dates: start: 20070201, end: 20071022
  3. ASPIRIN [Concomitant]

REACTIONS (5)
  - ANAEMIA [None]
  - FATIGUE [None]
  - METASTASES TO BONE [None]
  - PLATELET COUNT DECREASED [None]
  - RENAL FAILURE [None]
